FAERS Safety Report 20852422 (Version 2)
Quarter: 2022Q2

REPORT INFORMATION
  Report Type: Spontaneous
  Country: US (occurrence: US)
  Receive Date: 20220520
  Receipt Date: 20220530
  Transmission Date: 20220720
  Serious: No
  Sender: FDA-Public Use
  Company Number: US-PFIZER INC-202200607138

PATIENT
  Sex: Female

DRUGS (3)
  1. NYVEPRIA [Suspect]
     Active Substance: PEGFILGRASTIM-APGF
     Dosage: UNK
  2. TRODELVY [Suspect]
     Active Substance: SACITUZUMAB GOVITECAN-HZIY
     Dosage: UNK
     Route: 042
     Dates: start: 2021
  3. NEULASTA [Concomitant]
     Active Substance: PEGFILGRASTIM
     Dosage: UNK

REACTIONS (1)
  - Malaise [Unknown]
